FAERS Safety Report 4960351-9 (Version None)
Quarter: 2006Q2

REPORT INFORMATION
  Report Type: 
  Country: None (occurrence: None)
  Receive Date: 20060403
  Receipt Date: 20060327
  Transmission Date: 20061013
  Serious: Yes (Death)
  Sender: FDA-Public Use
  Company Number: PHNR2006AU00608

PATIENT
  Age: 7 Year
  Sex: Female

DRUGS (2)
  1. CATAPRES [Suspect]
     Dosage: 225 UG/DAY
     Route: 048
     Dates: start: 19940428
  2. RITALIN [Suspect]
     Dosage: 25 MG DAILY
     Dates: start: 19911201

REACTIONS (2)
  - SUDDEN DEATH [None]
  - VOMITING [None]
